FAERS Safety Report 9624838 (Version 2)
Quarter: 2014Q3

REPORT INFORMATION
  Report Type: Report from Study
  Country: GR (occurrence: GR)
  Receive Date: 20131015
  Receipt Date: 20140912
  Transmission Date: 20150326
  Serious: No
  Sender: FDA-Public Use
  Company Number: PHHY2013GR111201

PATIENT

DRUGS (1)
  1. ILARIS [Suspect]
     Active Substance: CANAKINUMAB

REACTIONS (7)
  - Pain in extremity [Recovered/Resolved]
  - Nasal congestion [Recovered/Resolved]
  - Dermatitis atopic [Recovered/Resolved]
  - Cellulitis staphylococcal [Recovered/Resolved]
  - Cellulitis [Recovered/Resolved]
  - Pyrexia [Recovered/Resolved]
  - Viral myositis [Recovered/Resolved]

NARRATIVE: CASE EVENT DATE: 20120601
